FAERS Safety Report 6692504-6 (Version None)
Quarter: 2010Q2

REPORT INFORMATION
  Report Type: 
  Country: None (occurrence: None)
  Receive Date: 20100422
  Receipt Date: 20100412
  Transmission Date: 20101027
  Serious: Yes (Death)
  Sender: FDA-Public Use
  Company Number: B0645090A

PATIENT
  Sex: Male
  Weight: 55.6 kg

DRUGS (11)
  1. ARIXTRA [Suspect]
     Indication: PULMONARY EMBOLISM
     Dosage: 7.5MG PER DAY
     Route: 058
     Dates: start: 20100314, end: 20100328
  2. COUMADIN [Suspect]
     Indication: PULMONARY EMBOLISM
     Route: 048
     Dates: start: 20100318, end: 20100328
  3. ROCEPHIN [Concomitant]
     Dosage: 1G PER DAY
     Route: 042
     Dates: start: 20100314, end: 20100323
  4. DEROXAT [Concomitant]
     Indication: DRUG USE FOR UNKNOWN INDICATION
     Dosage: 1UNIT PER DAY
     Route: 065
  5. OMIX [Concomitant]
     Indication: DRUG USE FOR UNKNOWN INDICATION
     Dosage: 1UNIT PER DAY
     Route: 065
  6. AMLOR [Concomitant]
     Indication: DRUG USE FOR UNKNOWN INDICATION
     Dosage: 5MG PER DAY
     Route: 065
  7. EUPRESSYL [Concomitant]
     Indication: DRUG USE FOR UNKNOWN INDICATION
     Dosage: 30MG PER DAY
     Route: 065
     Dates: end: 20100317
  8. TRILEPTAL [Concomitant]
     Indication: DRUG USE FOR UNKNOWN INDICATION
     Dosage: 2UNIT PER DAY
     Route: 065
  9. SERESTA [Concomitant]
     Indication: DRUG USE FOR UNKNOWN INDICATION
     Dosage: .5MG PER DAY
     Route: 065
  10. COVERSYL [Concomitant]
     Indication: DRUG USE FOR UNKNOWN INDICATION
     Dosage: 2.5MG PER DAY
     Route: 065
     Dates: start: 20100318
  11. CARDENSIEL [Concomitant]
     Indication: DRUG USE FOR UNKNOWN INDICATION
     Dosage: 1.25MG PER DAY
     Route: 065

REACTIONS (9)
  - CORNEAL REFLEX DECREASED [None]
  - DISORIENTATION [None]
  - FALL [None]
  - HYPERTENSION [None]
  - HYPOTONIA [None]
  - INCOHERENT [None]
  - MYDRIASIS [None]
  - OXYGEN SATURATION DECREASED [None]
  - SUBDURAL HAEMATOMA [None]
